FAERS Safety Report 10488110 (Version 1)
Quarter: 2014Q4

REPORT INFORMATION
  Report Type: Spontaneous
  Country: GB (occurrence: GB)
  Receive Date: 20141002
  Receipt Date: 20141002
  Transmission Date: 20150528
  Serious: Yes (Other)
  Sender: FDA-Public Use
  Company Number: GB-ROCHE-1466854

PATIENT
  Age: 69 Year
  Sex: Male

DRUGS (3)
  1. VEMURAFENIB [Suspect]
     Active Substance: VEMURAFENIB
     Indication: METASTATIC MALIGNANT MELANOMA
     Route: 065
  2. VEMURAFENIB [Suspect]
     Active Substance: VEMURAFENIB
     Dosage: STARTED AFTER 2 WEEKS OF INTERRUPTION OF 2ND THERAPY.
     Route: 065
  3. VEMURAFENIB [Suspect]
     Active Substance: VEMURAFENIB
     Dosage: STARTED AFTER ONE WEEK OF INTERRUTION OF FIRST THERAPY.
     Route: 065

REACTIONS (3)
  - Keratoacanthoma [Unknown]
  - Pyogenic granuloma [Not Recovered/Not Resolved]
  - Rash [Unknown]
